FAERS Safety Report 5862342-2 (Version None)
Quarter: 2008Q3

REPORT INFORMATION
  Report Type: 
  Country: None (occurrence: None)
  Receive Date: 20080828
  Receipt Date: 20080820
  Transmission Date: 20090109
  Serious: Yes (Other)
  Sender: FDA-Public Use
  Company Number: US-JNJFOC-20080805081

PATIENT
  Age: 63 Year
  Sex: Male

DRUGS (2)
  1. REMICADE [Suspect]
     Dosage: 2ND EXPOSURE
     Route: 042
  2. REMICADE [Suspect]
     Indication: RHEUMATOID ARTHRITIS
     Dosage: 1ST EXPOSURE - LONGTERM
     Route: 042

REACTIONS (4)
  - BLOOD CREATININE INCREASED [None]
  - GASTRIC CANCER [None]
  - INFUSION RELATED REACTION [None]
  - KNEE ARTHROPLASTY [None]
